FAERS Safety Report 24541260 (Version 1)
Quarter: 2024Q4

REPORT INFORMATION
  Report Type: Report from Study
  Country: NL (occurrence: NL)
  Receive Date: 20241023
  Receipt Date: 20241023
  Transmission Date: 20250115
  Serious: Yes (Death, Other)
  Sender: VERITY PHARMACEUTICALS INC.
  Company Number: NL-VER-202400062

PATIENT
  Age: 81 Year
  Sex: Male

DRUGS (3)
  1. TRIPTORELIN PAMOATE [Suspect]
     Active Substance: TRIPTORELIN PAMOATE
     Indication: Prostate cancer
     Dosage: 22.5 MG, 1X 6 MONTHS; ZINR: 15533212
     Route: 030
     Dates: start: 20230501
  2. TRIPTORELIN PAMOATE [Suspect]
     Active Substance: TRIPTORELIN PAMOATE
     Indication: Prostate cancer
     Dosage: 22.5 MG, 1X 6 MONTHS; ZINR: 15533212
     Route: 030
     Dates: start: 20231025
  3. TRIPTORELIN PAMOATE [Suspect]
     Active Substance: TRIPTORELIN PAMOATE
     Indication: Prostate cancer
     Dosage: 22.5 MG, 1X 6 MONTHS; ZINR: 15533212
     Route: 030
     Dates: start: 20240419

REACTIONS (1)
  - Death [Fatal]

NARRATIVE: CASE EVENT DATE: 20240915
